FAERS Safety Report 24343489 (Version 2)
Quarter: 2024Q3

REPORT INFORMATION
  Report Type: Spontaneous
  Country: IN (occurrence: IN)
  Receive Date: 20240920
  Receipt Date: 20240923
  Transmission Date: 20241017
  Serious: Yes (Other)
  Sender: TORRENT
  Company Number: IN-TORRENT-00003664

PATIENT
  Age: 16 Year
  Sex: Female

DRUGS (2)
  1. RISPERIDONE [Suspect]
     Active Substance: RISPERIDONE
     Indication: Hypomania
     Route: 065
  2. VALPROATE SODIUM [Suspect]
     Active Substance: VALPROATE SODIUM
     Indication: Tourette^s disorder
     Route: 065

REACTIONS (7)
  - Tremor [Recovered/Resolved]
  - Hepatic enzyme increased [Recovered/Resolved]
  - Nausea [Recovered/Resolved]
  - Cogwheel rigidity [Recovered/Resolved]
  - Drug ineffective [Unknown]
  - Hypomania [Recovered/Resolved]
  - Tourette^s disorder [Recovered/Resolved]
